FAERS Safety Report 18070570 (Version 1)
Quarter: 2020Q3

REPORT INFORMATION
  Report Type: Spontaneous
  Country: KR (occurrence: KR)
  Receive Date: 20200727
  Receipt Date: 20200727
  Transmission Date: 20201103
  Serious: Yes (Hospitalization, Other)
  Sender: FDA-Public Use
  Company Number: KR-SA-2020SA188603

PATIENT

DRUGS (3)
  1. METHYLPREDNISOLONE. [Concomitant]
     Active Substance: METHYLPREDNISOLONE
     Indication: PREMEDICATION
     Dosage: 500 MG, 1X (PULSE THERAPY)
  2. METHYLPREDNISOLONE. [Concomitant]
     Active Substance: METHYLPREDNISOLONE
     Dosage: 125 MG, BID
  3. ANTI?THYMOCYTE GLOBULIN (RABBIT) NOS [Suspect]
     Active Substance: LAPINE T-LYMPHOCYTE IMMUNE GLOBULIN
     Indication: TRANSPLANT REJECTION
     Dosage: 1.5 MG/KG, QD

REACTIONS (8)
  - Asthenia [Unknown]
  - Tumour lysis syndrome [Unknown]
  - Oliguria [Recovering/Resolving]
  - Hyperphosphataemia [Recovering/Resolving]
  - Hyperuricaemia [Recovering/Resolving]
  - Urate nephropathy [Recovering/Resolving]
  - Hyperkalaemia [Recovering/Resolving]
  - Generalised oedema [Recovering/Resolving]
